FAERS Safety Report 20838971 (Version 1)
Quarter: 2022Q2

REPORT INFORMATION
  Report Type: Spontaneous
  Country: US (occurrence: None)
  Receive Date: 20220516
  Receipt Date: 20220516
  Transmission Date: 20220720
  Serious: No
  Sender: FDA-Public Use
  Company Number: None

PATIENT
  Sex: Male

DRUGS (4)
  1. ESBRIET [Suspect]
     Active Substance: PIRFENIDONE
     Indication: Idiopathic pulmonary fibrosis
     Dosage: TAKE 2 TABLETS BY MOUTH 3 TIMES DAILY WITH MEALS
     Route: 048
     Dates: start: 20210518
  2. NEXIUM CAP 20MG [Concomitant]
  3. NORVASC TAB 5MG [Concomitant]
  4. TOPROL XL TAB 200MG [Concomitant]

REACTIONS (1)
  - Death [None]
